FAERS Safety Report 10405456 (Version 1)
Quarter: 2014Q3

REPORT INFORMATION
  Report Type: Spontaneous
  Country: US (occurrence: None)
  Receive Date: 20140821
  Receipt Date: 20140821
  Transmission Date: 20150326
  Serious: No
  Sender: FDA-Public Use
  Company Number: None

PATIENT
  Age: 62 Year
  Sex: Male

DRUGS (18)
  1. FLUTICASONE [Concomitant]
     Active Substance: FLUTICASONE\FLUTICASONE PROPIONATE
  2. WARFARIN [Concomitant]
     Active Substance: WARFARIN
  3. MORPHINE [Concomitant]
     Active Substance: MORPHINE
  4. LEVITRA [Concomitant]
     Active Substance: VARDENAFIL HYDROCHLORIDE TRIHYDRATE
  5. LENALIDOMIDE [Concomitant]
     Active Substance: LENALIDOMIDE
  6. PAMIDRONATE [Concomitant]
     Active Substance: PAMIDRONATE DISODIUM
  7. CLINDAMYCIN HCL [Concomitant]
     Active Substance: CLINDAMYCIN HYDROCHLORIDE
  8. CYCLOBENZAPRINE [Concomitant]
     Active Substance: CYCLOBENZAPRINE
  9. DEXAMETHASONE. [Concomitant]
     Active Substance: DEXAMETHASONE
  10. CEPHALEXIN. [Concomitant]
     Active Substance: CEPHALEXIN
  11. LIDOCAINE(LIDODERM) [Concomitant]
  12. FAMOTIDINE. [Concomitant]
     Active Substance: FAMOTIDINE
  13. CHLORHEXIDINE GLUCONATE. [Concomitant]
     Active Substance: CHLORHEXIDINE GLUCONATE
  14. LISINOPRIL-HYDROCHLOROTHIAZIDE [Concomitant]
     Active Substance: HYDROCHLOROTHIAZIDE\LISINOPRIL
  15. CELEBREX [Concomitant]
     Active Substance: CELECOXIB
  16. REVLIMID [Suspect]
     Active Substance: LENALIDOMIDE
     Indication: PLASMA CELL MYELOMA
     Route: 048
     Dates: start: 20131129
  17. LENALIDOMIDE(REVLIMIDE) [Concomitant]
  18. TAMSULOSIN [Concomitant]
     Active Substance: TAMSULOSIN

REACTIONS (1)
  - Folliculitis [None]

NARRATIVE: CASE EVENT DATE: 20140804
